FAERS Safety Report 25263109 (Version 2)
Quarter: 2025Q2

REPORT INFORMATION
  Report Type: Spontaneous
  Country: JP (occurrence: JP)
  Receive Date: 20250502
  Receipt Date: 20250530
  Transmission Date: 20250716
  Serious: Yes (Other)
  Sender: AKEBIA THERAPEUTICS
  Company Number: JP-JT-EVA202502086AKEBIAP

PATIENT
  Age: 45 Year
  Sex: Female

DRUGS (1)
  1. FERRIC CITRATE ANHYDROUS [Suspect]
     Active Substance: FERRIC CITRATE ANHYDROUS
     Indication: Iron deficiency anaemia
     Route: 048

REACTIONS (1)
  - Surgery [Unknown]
